FAERS Safety Report 11248604 (Version 5)
Quarter: 2019Q1

REPORT INFORMATION
  Report Type: Spontaneous
  Country: US (occurrence: US)
  Receive Date: 20150708
  Receipt Date: 20190121
  Transmission Date: 20190417
  Serious: Yes (Hospitalization, Other)
  Sender: FDA-Public Use
  Company Number: US-DSJP-DSU-2015-120654

PATIENT

DRUGS (3)
  1. BENICAR [Suspect]
     Active Substance: OLMESARTAN MEDOXOMIL
     Indication: PRODUCT USED FOR UNKNOWN INDICATION
     Dosage: 40 MG, UNK
     Dates: start: 20100101, end: 201501
  2. BENICAR HCT [Suspect]
     Active Substance: HYDROCHLOROTHIAZIDE\OLMESARTAN MEDOXOMIL
     Dosage: UNK
  3. BENICAR HCT [Suspect]
     Active Substance: HYDROCHLOROTHIAZIDE\OLMESARTAN MEDOXOMIL
     Indication: HYPERTENSION
     Dosage: 40-12.5MG, QD
     Route: 048

REACTIONS (8)
  - Gastrooesophageal reflux disease [Unknown]
  - Diverticulum [Unknown]
  - Rectal haemorrhage [Unknown]
  - Angiopathy [Unknown]
  - Sprue-like enteropathy [Unknown]
  - Adenoma benign [Unknown]
  - Polyp [Unknown]
  - Renal failure [Unknown]

NARRATIVE: CASE EVENT DATE: 20101222
